FAERS Safety Report 14481939 (Version 1)
Quarter: 2018Q1

REPORT INFORMATION
  Report Type: Spontaneous
  Country: NL (occurrence: NL)
  Receive Date: 20180202
  Receipt Date: 20180202
  Transmission Date: 20180509
  Serious: Yes (Hospitalization, Other)
  Sender: FDA-Public Use
  Company Number: NL-009507513-1801NLD001649

PATIENT
  Age: 69 Year
  Sex: Male

DRUGS (8)
  1. DIPHANTOINE [Concomitant]
     Active Substance: PHENYTOIN
     Dosage: 2 X PER DAY 100 MILLIGRAM
     Route: 048
  2. THYRAX [Concomitant]
     Active Substance: LEVOTHYROXINE
     Dosage: 1 X PER DAY 200 MICROGRAM
     Route: 048
  3. TEMODAL [Suspect]
     Active Substance: TEMOZOLOMIDE
     Indication: PITUITARY TUMOUR
     Dosage: 500 MG, DAYS1-5 EVERY 4 WEEKS
     Route: 048
     Dates: start: 20110628, end: 20130305
  4. FLURAZEPAM HYDROCHLORIDE. [Concomitant]
     Active Substance: FLURAZEPAM HYDROCHLORIDE
     Dosage: 1 X PER DAY 30 MILLIGRAM
     Route: 048
  5. FUROSEMIDE. [Concomitant]
     Active Substance: FUROSEMIDE
     Dosage: 1 X PER DAY 20 MILLIGRAM
     Route: 048
  6. ANDROGEL [Concomitant]
     Active Substance: TESTOSTERONE
     Dosage: 1 X PER DAY 100 MILLIGRAM
     Route: 062
  7. SOLU-CORTEF [Concomitant]
     Active Substance: HYDROCORTISONE SODIUM SUCCINATE
     Dosage: 100 MG IM OR IV IN CASE OF SERIOUS ILLNESS
     Route: 042
  8. HYDROCORTISONE. [Concomitant]
     Active Substance: HYDROCORTISONE
     Dosage: 1 X PER DAY 20 MILLIGRAM
     Route: 048

REACTIONS (5)
  - Sepsis [Recovered/Resolved]
  - Off label use [Unknown]
  - Delirium [Recovered/Resolved]
  - Renal impairment [Recovered/Resolved]
  - Lung infection [Recovered/Resolved]

NARRATIVE: CASE EVENT DATE: 20110628
